FAERS Safety Report 6961382-X (Version None)
Quarter: 2010Q3

REPORT INFORMATION
  Report Type: 
  Country: None (occurrence: None)
  Receive Date: 20100901
  Receipt Date: 20100826
  Transmission Date: 20110219
  Serious: Yes (Other)
  Sender: FDA-Public Use
  Company Number: US-ALLERGAN-1011057US

PATIENT
  Age: 81 Year
  Sex: Female

DRUGS (2)
  1. ZYMAR [Suspect]
     Indication: INFECTION PROPHYLAXIS
     Dosage: 1 GTT, QID
     Dates: start: 20091229, end: 20100501
  2. SYSTANE [Concomitant]
     Indication: DRY EYE
     Dosage: 1 GTT, PRN
     Route: 047
     Dates: start: 20091201

REACTIONS (6)
  - ALOPECIA [None]
  - CYSTITIS [None]
  - PHARYNGEAL DISORDER [None]
  - TONGUE DISCOLOURATION [None]
  - UPPER-AIRWAY COUGH SYNDROME [None]
  - WEIGHT DECREASED [None]
